FAERS Safety Report 15095954 (Version 1)
Quarter: 2018Q3

REPORT INFORMATION
  Report Type: Spontaneous
  Country: US (occurrence: US)
  Receive Date: 20180702
  Receipt Date: 20180702
  Transmission Date: 20181010
  Serious: No
  Sender: FDA-Public Use
  Company Number: US-BIOGEN-2018BI00599978

PATIENT
  Sex: Female

DRUGS (1)
  1. AVONEX [Suspect]
     Active Substance: INTERFERON BETA-1A
     Indication: MULTIPLE SCLEROSIS
     Route: 065
     Dates: start: 20091214

REACTIONS (5)
  - Cataract [Unknown]
  - Macular fibrosis [Unknown]
  - Visual impairment [Unknown]
  - Glaucoma [Unknown]
  - Vitreous floaters [Unknown]
